FAERS Safety Report 16799533 (Version 2)
Quarter: 2019Q3

REPORT INFORMATION
  Report Type: Spontaneous
  Country: FR (occurrence: FR)
  Receive Date: 20190912
  Receipt Date: 20190927
  Transmission Date: 20191005
  Serious: Yes (Other)
  Sender: FDA-Public Use
  Company Number: FR-MYLANLABS-2019M1084040

PATIENT
  Age: 67 Year
  Sex: Female

DRUGS (7)
  1. AVASTIN [Suspect]
     Active Substance: BEVACIZUMAB
     Indication: COLORECTAL ADENOCARCINOMA
     Dosage: 245 MILLIGRAM, CYCLE
     Route: 042
     Dates: start: 20190221, end: 20190221
  2. ZOPHREN                            /00955301/ [Suspect]
     Active Substance: ONDANSETRON
     Indication: ANTIEMETIC SUPPORTIVE CARE
     Dosage: 8 MILLIGRAM, CYCLE
     Route: 048
     Dates: start: 20190221, end: 20190221
  3. PREDNISONE. [Suspect]
     Active Substance: PREDNISONE
     Indication: ALLERGY PROPHYLAXIS
     Dosage: 40 MILLIGRAM, CYCLE
     Route: 048
     Dates: start: 20190221, end: 20190223
  4. ATROPINE. [Suspect]
     Active Substance: ATROPINE
     Indication: MUSCLE SPASMS
     Dosage: 0.25 MILLIGRAM, CYCLE
     Route: 058
     Dates: start: 20190221, end: 20190221
  5. EMEND [Suspect]
     Active Substance: APREPITANT
     Indication: ANTIEMETIC SUPPORTIVE CARE
     Dosage: 125MG-80MG-80MG
     Route: 048
     Dates: start: 20190221, end: 20190223
  6. IRINOTECAN KABI [Suspect]
     Active Substance: IRINOTECAN
     Indication: COLORECTAL ADENOCARCINOMA
     Dosage: 194 MILLIGRAM, CYCLE
     Route: 042
     Dates: start: 20190221, end: 20190221
  7. PREDNISOLON MYLAN 20 MG, TABLETTEN [Suspect]
     Active Substance: PREDNISOLONE
     Indication: ALLERGY PROPHYLAXIS
     Dosage: 40 MILLIGRAM, CYCLE
     Route: 048
     Dates: start: 20190221

REACTIONS (5)
  - Nausea [Recovered/Resolved]
  - Hypersensitivity [Recovered/Resolved]
  - Urticaria [Recovered/Resolved]
  - Malaise [Recovered/Resolved]
  - Hypertension [Recovered/Resolved]

NARRATIVE: CASE EVENT DATE: 20190221
